FAERS Safety Report 14537407 (Version 2)
Quarter: 2018Q2

REPORT INFORMATION
  Report Type: Spontaneous
  Country: US (occurrence: US)
  Receive Date: 20180215
  Receipt Date: 20180524
  Transmission Date: 20180711
  Serious: Yes (Hospitalization)
  Sender: FDA-Public Use
  Company Number: US-ACTELION-A-NJ2018-167466

PATIENT
  Age: 40 Year
  Sex: Female

DRUGS (8)
  1. METOLAZONE. [Concomitant]
     Active Substance: METOLAZONE
  2. HYDRALAZINE [Concomitant]
     Active Substance: HYDRALAZINE HYDROCHLORIDE
  3. TORSEMIDE. [Concomitant]
     Active Substance: TORSEMIDE
  4. TRACLEER [Suspect]
     Active Substance: BOSENTAN
     Indication: PULMONARY ARTERIAL HYPERTENSION
     Dosage: 62.5 MG, BID
     Route: 048
     Dates: start: 20171122
  5. METOPROLOL. [Concomitant]
     Active Substance: METOPROLOL
  6. CRESTOR [Concomitant]
     Active Substance: ROSUVASTATIN CALCIUM
  7. TYVASO [Concomitant]
     Active Substance: TREPROSTINIL
  8. SILDENAFIL. [Concomitant]
     Active Substance: SILDENAFIL

REACTIONS (6)
  - Fluid overload [Unknown]
  - Chest pain [Recovered/Resolved]
  - Biopsy [Unknown]
  - Urine output decreased [Recovered/Resolved]
  - Dyspnoea [Recovered/Resolved]
  - Cardiac failure [Unknown]
